FAERS Safety Report 4920063-4 (Version None)
Quarter: 2006Q1

REPORT INFORMATION
  Report Type: 
  Country: None (occurrence: None)
  Receive Date: 20060223
  Receipt Date: 20060215
  Transmission Date: 20060701
  Serious: Yes (Hospitalization)
  Sender: FDA-Public Use
  Company Number: FR-AVENTIS-200610615FR

PATIENT
  Age: 73 Year
  Sex: Male

DRUGS (1)
  1. LOVENOX [Suspect]
     Indication: THROMBOSIS PROPHYLAXIS
     Route: 058
     Dates: start: 20060117

REACTIONS (4)
  - HAEMORRHAGE [None]
  - HAEMORRHAGE URINARY TRACT [None]
  - POST PROCEDURAL COMPLICATION [None]
  - URINARY RETENTION [None]
